FAERS Safety Report 7530647-5 (Version None)
Quarter: 2011Q2

REPORT INFORMATION
  Report Type: 
  Country: None (occurrence: None)
  Receive Date: 20110607
  Receipt Date: 20110601
  Transmission Date: 20111010
  Serious: Yes (Death, Hospitalization, Other)
  Sender: FDA-Public Use
  Company Number: JP-ABBOTT-11P-087-0726015-00

PATIENT
  Sex: Male

DRUGS (6)
  1. HUMIRA [Suspect]
     Dates: start: 20110311, end: 20110311
  2. FERROUS CITRATE [Concomitant]
     Indication: PROPHYLAXIS
  3. HUMIRA [Suspect]
     Dates: start: 20110325, end: 20110506
  4. TPN [Concomitant]
     Indication: PRODUCT USED FOR UNKNOWN INDICATION
     Dosage: 3 DOSAGE FORMS DAILY
  5. HUMIRA [Suspect]
     Indication: CROHN'S DISEASE
     Route: 058
     Dates: start: 20110224, end: 20110224
  6. MESALAMINE [Concomitant]
     Indication: CROHN'S DISEASE

REACTIONS (7)
  - SHOCK [None]
  - CARDIO-RESPIRATORY ARREST [None]
  - SEPSIS [None]
  - PNEUMONIA ASPIRATION [None]
  - INTESTINAL OBSTRUCTION [None]
  - VENTRICULAR FIBRILLATION [None]
  - MULTI-ORGAN FAILURE [None]
